FAERS Safety Report 9742567 (Version 2)
Quarter: 2015Q3

REPORT INFORMATION
  Report Type: Spontaneous
  Country: US (occurrence: US)
  Receive Date: 20131210
  Receipt Date: 20150804
  Transmission Date: 20151125
  Serious: No
  Sender: FDA-Public Use
  Company Number: US-GILEAD-2009-0024519

PATIENT
  Age: 12 Year
  Sex: Male
  Weight: 43.54 kg

DRUGS (11)
  1. CERTIRIZINE [Concomitant]
  2. ALBUTEROL INHALER [Concomitant]
     Active Substance: ALBUTEROL
  3. COUMADIN [Concomitant]
     Active Substance: WARFARIN SODIUM
  4. VENTAVIS [Concomitant]
     Active Substance: ILOPROST
  5. REVATIO [Concomitant]
     Active Substance: SILDENAFIL CITRATE
  6. DIGOXIN. [Concomitant]
     Active Substance: DIGOXIN
  7. GUMMY SWIRLS CHEWABLES [Concomitant]
  8. OXYGEN. [Concomitant]
     Active Substance: OXYGEN
  9. LETAIRIS [Suspect]
     Active Substance: AMBRISENTAN
     Indication: PULMONARY ARTERIAL HYPERTENSION
     Route: 048
     Dates: start: 20090114
  10. FLOVENT AER INHALER [Concomitant]
  11. DILTIAZEM [Concomitant]
     Active Substance: DILTIAZEM

REACTIONS (4)
  - Contusion [Unknown]
  - Pruritus [Unknown]
  - Oropharyngeal pain [Unknown]
  - Rhinorrhoea [Unknown]
